FAERS Safety Report 6246781-6 (Version None)
Quarter: 2009Q2

REPORT INFORMATION
  Report Type: 
  Country: None (occurrence: None)
  Receive Date: 20090626
  Receipt Date: 20090616
  Transmission Date: 20091009
  Serious: Yes (Hospitalization, Disabling)
  Sender: FDA-Public Use
  Company Number: US-MYLANLABS-2009S1010789

PATIENT
  Age: 31 Year
  Sex: Male
  Weight: 86.18 kg

DRUGS (3)
  1. LEVETIRACETAM [Suspect]
     Indication: GRAND MAL CONVULSION
     Route: 048
     Dates: start: 20081201, end: 20090131
  2. LEVETIRACETAM [Suspect]
     Indication: CONVULSION PROPHYLAXIS
     Route: 048
     Dates: start: 20081201, end: 20090131
  3. DEPAKOTE [Concomitant]
     Indication: CONVULSION PROPHYLAXIS
     Route: 048
     Dates: start: 20040101

REACTIONS (3)
  - DRUG INEFFECTIVE [None]
  - GRAND MAL CONVULSION [None]
  - STATUS EPILEPTICUS [None]
